FAERS Safety Report 8557824-9 (Version None)
Quarter: 2012Q3

REPORT INFORMATION
  Report Type: 
  Country: None (occurrence: None)
  Receive Date: 20120801
  Receipt Date: 20110606
  Transmission Date: 20120928
  Serious: Yes (Other)
  Sender: FDA-Public Use
  Company Number: CA-GLAXOSMITHKLINE-A0930445A

PATIENT
  Sex: Female

DRUGS (3)
  1. TYKERB [Suspect]
     Indication: BREAST CANCER METASTATIC
     Dosage: 1250MG PER DAY
     Route: 048
     Dates: start: 20110518
  2. RAMIPRIL [Concomitant]
     Indication: CARDIAC DISORDER
  3. XELODA [Suspect]
     Indication: PRODUCT USED FOR UNKNOWN INDICATION
     Route: 065

REACTIONS (10)
  - NEOPLASM PROGRESSION [None]
  - ASTHENIA [None]
  - HYPOTENSION [None]
  - DIARRHOEA [None]
  - NAUSEA [None]
  - DEHYDRATION [None]
  - LUNG DISORDER [None]
  - FATIGUE [None]
  - HEPATIC NEOPLASM [None]
  - DECREASED APPETITE [None]
